FAERS Safety Report 9918079 (Version 2)
Quarter: 2014Q1

REPORT INFORMATION
  Report Type: Spontaneous
  Country: US (occurrence: US)
  Receive Date: 20140223
  Receipt Date: 20140223
  Transmission Date: 20141002
  Serious: Yes (Other)
  Sender: FDA-Public Use
  Company Number: US-GE HEALTHCARE MEDICAL DIAGNOSTICS-OSCN-PR-0712S-0493

PATIENT
  Age: 20 Year
  Sex: Female

DRUGS (6)
  1. OMNISCAN [Suspect]
     Indication: HEADACHE
     Route: 042
     Dates: start: 20050416, end: 20050416
  2. OMNISCAN [Suspect]
     Indication: RENAL VEIN THROMBOSIS
     Route: 042
     Dates: start: 20060123, end: 20060123
  3. OMNISCAN [Suspect]
     Indication: CONVULSION
     Route: 042
     Dates: start: 20060124, end: 20060124
  4. OMNISCAN [Suspect]
     Route: 042
     Dates: start: 20060204, end: 20060204
  5. OMNISCAN [Suspect]
     Route: 042
     Dates: start: 20060315, end: 20060315
  6. GADOLINIUM (UNSPECIFIED) [Suspect]
     Indication: PRODUCT USED FOR UNKNOWN INDICATION
     Route: 042
     Dates: start: 20060207, end: 20060207

REACTIONS (2)
  - Nephrogenic systemic fibrosis [Not Recovered/Not Resolved]
  - Psychogenic seizure [Recovered/Resolved]
